FAERS Safety Report 4440340-3 (Version None)
Quarter: 2004Q3

REPORT INFORMATION
  Report Type: 
  Country: None (occurrence: None)
  Receive Date: 20040831
  Receipt Date: 20040818
  Transmission Date: 20050211
  Serious: Yes (Hospitalization)
  Sender: FDA-Public Use
  Company Number: CIP04001831

PATIENT
  Age: 86 Year
  Sex: Female

DRUGS (10)
  1. BENET (RISEDRONATE SODIUM) TABLET, 2.5MG [Suspect]
     Indication: OSTEOPOROSIS
     Dosage: 2.4 MG DAILY, ORAL
     Route: 048
     Dates: start: 20031204, end: 20040809
  2. SOLETON (ZALTOPROFEN) [Suspect]
     Dosage: ORAL
     Route: 048
     Dates: end: 20040809
  3. SELBEX (TEPRENONE) [Suspect]
     Dosage: ORAL
     Route: 048
     Dates: end: 20040809
  4. BAYCARON(MEFRUSIDE) [Suspect]
     Dosage: ORAL
     Route: 048
     Dates: end: 20040809
  5. BLOPRESS (CANDESARTAN CILEXETIL) [Concomitant]
  6. AMLODIPINE BESYLATE [Concomitant]
  7. DISOPYRAMIDE [Concomitant]
  8. ARICEPT [Concomitant]
  9. ALFAROL (ALFACALCIDOL) [Concomitant]
  10. METHYCOBAL (MECOBALAMIN) [Concomitant]

REACTIONS (2)
  - PLATELET COUNT DECREASED [None]
  - PURPURA [None]
